FAERS Safety Report 8392735 (Version 3)
Quarter: 2012Q4

REPORT INFORMATION
  Report Type: 
  Country: BR (occurrence: BR)
  Receive Date: 20120206
  Receipt Date: 20121004
  Transmission Date: 20130627
  Serious: Yes (Other)
  Sender: FDA-Public Use
  Company Number: BR-ASTRAZENECA-2012SE06528

PATIENT
  Age: 53 Year
  Sex: Female
  Weight: 76 kg

DRUGS (3)
  1. OMEPRAZOLE [Suspect]
     Indication: ABDOMINAL PAIN UPPER
     Route: 048
     Dates: start: 201111, end: 20120127
  2. RIVOTRIL [Concomitant]
     Indication: INSOMNIA
     Dosage: DAILY
     Route: 048
  3. UNKNOWN [Concomitant]
     Indication: ABDOMINAL PAIN UPPER
     Dosage: DAILY
     Route: 048

REACTIONS (3)
  - Device breakage [Recovering/Resolving]
  - Abdominal pain upper [Recovered/Resolved]
  - Drug ineffective [Unknown]
